FAERS Safety Report 5984386-2 (Version None)
Quarter: 2008Q4

REPORT INFORMATION
  Report Type: 
  Country: None (occurrence: None)
  Receive Date: 20081208
  Receipt Date: 20080312
  Transmission Date: 20090506
  Serious: No
  Sender: FDA-Public Use
  Company Number: US-AMGEN-KDL269234

PATIENT
  Sex: Male

DRUGS (12)
  1. ENBREL [Suspect]
     Indication: RHEUMATOID ARTHRITIS
     Route: 058
     Dates: start: 20070401
  2. HYDROCODONE BITARTRATE + ACETAMINOPHEN [Concomitant]
     Route: 048
  3. PRILOSEC [Concomitant]
  4. LIBRIUM [Concomitant]
  5. ATENOLOL [Concomitant]
  6. ASPIRIN [Concomitant]
  7. MULTI-VITAMINS [Concomitant]
  8. HYDROCHLOROTHIAZIDE [Concomitant]
  9. ALLOPURINOL [Concomitant]
  10. PROBENECID [Concomitant]
  11. COLCHICINE [Concomitant]
  12. PREDNISONE TAB [Concomitant]

REACTIONS (2)
  - ARTHRALGIA [None]
  - FEELING HOT [None]
